FAERS Safety Report 7120977-3 (Version None)
Quarter: 2010Q4

REPORT INFORMATION
  Report Type: 
  Country: None (occurrence: None)
  Receive Date: 20101124
  Receipt Date: 20100122
  Transmission Date: 20110411
  Serious: No
  Sender: FDA-Public Use
  Company Number: US-PFIZER INC-2010010653

PATIENT
  Sex: Female
  Weight: 83 kg

DRUGS (2)
  1. TIKOSYN [Suspect]
     Indication: ARRHYTHMIA
     Dosage: 250 UG, UNK
     Route: 048
     Dates: start: 20080401
  2. TIKOSYN [Suspect]
     Dosage: 500 UG, 2X/DAY
     Route: 048
     Dates: start: 20080701

REACTIONS (3)
  - ARRHYTHMIA [None]
  - DRUG EFFECT DECREASED [None]
  - TACHYCARDIA [None]
